FAERS Safety Report 8382991-X (Version None)
Quarter: 2012Q2

REPORT INFORMATION
  Report Type: 
  Country: None (occurrence: None)
  Receive Date: 20120524
  Receipt Date: 20120517
  Transmission Date: 20120825
  Serious: Yes (Congenital Anomaly)
  Sender: FDA-Public Use
  Company Number: GB-PFIZER INC-2012055268

PATIENT

DRUGS (1)
  1. SULFASALAZINE [Suspect]
     Dosage: UNK
     Route: 064

REACTIONS (2)
  - ATRIOVENTRICULAR SEPTAL DEFECT [None]
  - MATERNAL EXPOSURE TIMING UNSPECIFIED [None]
